FAERS Safety Report 16076036 (Version 2)
Quarter: 2019Q1

REPORT INFORMATION
  Report Type: Spontaneous
  Country: US (occurrence: US)
  Receive Date: 20190315
  Receipt Date: 20190325
  Transmission Date: 20190418
  Serious: No
  Sender: FDA-Public Use
  Company Number: US-AMGEN-USASP2019036677

PATIENT
  Age: 56 Year
  Sex: Female

DRUGS (6)
  1. ZETIA [Concomitant]
     Active Substance: EZETIMIBE
  2. FISH OIL [Concomitant]
     Active Substance: FISH OIL
     Dosage: UNK, 2 TO 4 TIMES DAILY
  3. VASCEPA [Concomitant]
     Active Substance: ICOSAPENT ETHYL
  4. REPATHA [Suspect]
     Active Substance: EVOLOCUMAB
     Indication: BLOOD CHOLESTEROL INCREASED
     Dosage: 140 MILLIGRAM, Q2WK
     Route: 065
     Dates: start: 2015
  5. ROSUVASTATIN. [Concomitant]
     Active Substance: ROSUVASTATIN
  6. METFORMIN [Concomitant]
     Active Substance: METFORMIN HYDROCHLORIDE
     Dosage: 500 MILLIGRAM

REACTIONS (5)
  - Incorrect dose administered by device [Unknown]
  - Blood cholesterol increased [Not Recovered/Not Resolved]
  - Accidental exposure to product [Unknown]
  - Wrong technique in product usage process [Unknown]
  - Device malfunction [Unknown]

NARRATIVE: CASE EVENT DATE: 20190301
